FAERS Safety Report 22242681 (Version 2)
Quarter: 2023Q2

REPORT INFORMATION
  Report Type: Spontaneous
  Country: FR (occurrence: FR)
  Receive Date: 20230424
  Receipt Date: 20230608
  Transmission Date: 20230722
  Serious: No
  Sender: FDA-Public Use
  Company Number: FR-PFIZER INC-202300157254

PATIENT
  Age: 14 Year
  Sex: Male

DRUGS (1)
  1. SOMAVERT [Suspect]
     Active Substance: PEGVISOMANT
     Indication: Growth disorder
     Dosage: UNK

REACTIONS (3)
  - Off label use [Unknown]
  - Device defective [Unknown]
  - Drug dose omission by device [Unknown]
